FAERS Safety Report 9348765 (Version 5)
Quarter: 2013Q3

REPORT INFORMATION
  Report Type: Report from Study
  Country: DE (occurrence: DE)
  Receive Date: 20130614
  Receipt Date: 20130823
  Transmission Date: 20140515
  Serious: Yes (Hospitalization)
  Sender: FDA-Public Use
  Company Number: DE-SANOFI-AVENTIS-2013SA058713

PATIENT
  Age: 76 Year
  Sex: Male

DRUGS (12)
  1. AFLIBERCEPT [Suspect]
     Indication: COLORECTAL CANCER METASTATIC
     Route: 042
     Dates: start: 20130527, end: 20130527
  2. 5-FU [Suspect]
     Indication: COLORECTAL CANCER METASTATIC
     Route: 040
     Dates: start: 20130527, end: 20130527
  3. 5-FU [Suspect]
     Indication: COLORECTAL CANCER METASTATIC
     Route: 042
     Dates: start: 20130527, end: 20130527
  4. IRINOTECAN [Suspect]
     Indication: COLORECTAL CANCER METASTATIC
     Route: 042
     Dates: start: 20130527, end: 20130527
  5. LEUCOVORIN [Suspect]
     Indication: COLORECTAL CANCER METASTATIC
     Route: 042
     Dates: start: 20130527, end: 20130527
  6. HEPARIN GROUP [Concomitant]
     Indication: PROPHYLAXIS
     Dates: start: 20130424
  7. ANALGESICS [Concomitant]
     Dates: start: 20130424
  8. SEROTONIN ANTAGONISTS [Concomitant]
     Indication: PROPHYLAXIS
     Dates: start: 20130527
  9. ALIZAPRIDE [Concomitant]
     Indication: PROPHYLAXIS
     Dates: start: 20130527
  10. ATROPINE SULFATE [Concomitant]
     Indication: PROPHYLAXIS
     Dates: start: 20130527
  11. ANTICHOLINERGICS [Concomitant]
     Dates: start: 20130604
  12. ANTISEPTICS [Concomitant]
     Dates: start: 20130604

REACTIONS (1)
  - Peripheral ischaemia [Recovered/Resolved with Sequelae]
